FAERS Safety Report 23328707 (Version 1)
Quarter: 2023Q4

REPORT INFORMATION
  Report Type: Report from Study
  Country: US (occurrence: US)
  Receive Date: 20231221
  Receipt Date: 20231221
  Transmission Date: 20240110
  Serious: Yes (Other)
  Sender: FDA-Public Use
  Company Number: US-ABBVIE-4332521

PATIENT
  Sex: Female

DRUGS (1)
  1. HUMIRA [Suspect]
     Active Substance: ADALIMUMAB
     Indication: Rheumatoid arthritis
     Dosage: CITRATE FREE
     Route: 058
     Dates: start: 20221001

REACTIONS (10)
  - Systemic lupus erythematosus [Unknown]
  - Pain in extremity [Not Recovered/Not Resolved]
  - Onychoclasis [Not Recovered/Not Resolved]
  - Amnesia [Unknown]
  - Musculoskeletal disorder [Not Recovered/Not Resolved]
  - Arthritis [Unknown]
  - Osteoarthritis [Unknown]
  - Mobility decreased [Unknown]
  - Insomnia [Unknown]
  - Nail ridging [Not Recovered/Not Resolved]

NARRATIVE: CASE EVENT DATE: 20230101
